FAERS Safety Report 17690117 (Version 2)
Quarter: 2020Q2

REPORT INFORMATION
  Report Type: Spontaneous
  Country: DE (occurrence: DE)
  Receive Date: 20200421
  Receipt Date: 20200526
  Transmission Date: 20200714
  Serious: Yes (Death)
  Sender: FDA-Public Use
  Company Number: DE-CELGENEUS-DEU-20200406336

PATIENT
  Sex: Male

DRUGS (1)
  1. REVLIMID [Suspect]
     Active Substance: LENALIDOMIDE
     Indication: PRODUCT USED FOR UNKNOWN INDICATION
     Route: 048
     Dates: start: 2018

REACTIONS (1)
  - Death [Fatal]
